FAERS Safety Report 6276239-X (Version None)
Quarter: 2009Q3

REPORT INFORMATION
  Report Type: 
  Country: None (occurrence: None)
  Receive Date: 20090722
  Receipt Date: 20090720
  Transmission Date: 20100115
  Serious: Yes (Death, Hospitalization, Disabling, Other)
  Sender: FDA-Public Use
  Company Number: US-BAYER-200917650GPV

PATIENT
  Age: 52 Year
  Sex: Male
  Weight: 95 kg

DRUGS (5)
  1. SORAFENIB [Suspect]
     Indication: HEPATIC NEOPLASM MALIGNANT
     Dosage: TOTAL DAILY DOSE: 800 MG
     Route: 048
     Dates: start: 20081230, end: 20090203
  2. TRAMADOL HCL [Concomitant]
     Indication: ABDOMINAL PAIN UPPER
     Route: 065
     Dates: start: 20081230, end: 20090106
  3. CHOLECALCIFEROL [Concomitant]
     Indication: MINERAL SUPPLEMENTATION
     Route: 065
     Dates: start: 20090205
  4. TEMAZEPAM [Concomitant]
     Indication: INSOMNIA
     Route: 065
     Dates: start: 20090204
  5. OXYCODONE [Concomitant]
     Indication: ABDOMINAL PAIN LOWER
     Route: 065
     Dates: start: 20090207

REACTIONS (9)
  - GASTROINTESTINAL HAEMORRHAGE [None]
  - HAEMATEMESIS [None]
  - HEPATIC NEOPLASM MALIGNANT [None]
  - MALIGNANT NEOPLASM PROGRESSION [None]
  - MELAENA [None]
  - MESENTERIC VEIN THROMBOSIS [None]
  - OESOPHAGEAL ULCER [None]
  - OESOPHAGEAL VARICES HAEMORRHAGE [None]
  - POST PROCEDURAL COMPLICATION [None]
